FAERS Safety Report 13797742 (Version 1)
Quarter: 2017Q3

REPORT INFORMATION
  Report Type: Spontaneous
  Country: US (occurrence: US)
  Receive Date: 20170726
  Receipt Date: 20170726
  Transmission Date: 20171127
  Serious: Yes (Death, Hospitalization)
  Sender: FDA-Public Use
  Company Number: None

PATIENT
  Age: 52 Year
  Sex: Male
  Weight: 128.48 kg

DRUGS (21)
  1. DACLATASVIR. [Suspect]
     Active Substance: DACLATASVIR
     Route: 048
     Dates: start: 20160630, end: 20161215
  2. ALDACTONE [Concomitant]
     Active Substance: SPIRONOLACTONE
  3. RIFAXIMIN [Concomitant]
     Active Substance: RIFAXIMIN
  4. POTASSIUM CHLORIDE. [Concomitant]
     Active Substance: POTASSIUM CHLORIDE
  5. DITROPAN [Concomitant]
     Active Substance: OXYBUTYNIN CHLORIDE
  6. SOFOSBUVIR [Suspect]
     Active Substance: SOFOSBUVIR
     Route: 048
     Dates: start: 20160630, end: 20161215
  7. BUMEX [Concomitant]
     Active Substance: BUMETANIDE
  8. METOLAZONE. [Concomitant]
     Active Substance: METOLAZONE
  9. SYMBICORT [Concomitant]
     Active Substance: BUDESONIDE\FORMOTEROL FUMARATE DIHYDRATE
  10. FENTANYL. [Concomitant]
     Active Substance: FENTANYL
  11. TYLENOL [Concomitant]
     Active Substance: ACETAMINOPHEN
  12. OXYCODONE [Concomitant]
     Active Substance: OXYCODONE
  13. INDERAL [Concomitant]
     Active Substance: PROPRANOLOL HYDROCHLORIDE
  14. LASIX [Concomitant]
     Active Substance: FUROSEMIDE
  15. LACTULOSE. [Concomitant]
     Active Substance: LACTULOSE
  16. CLAFORAN [Concomitant]
     Active Substance: CEFOTAXIME SODIUM
  17. ALBUMIN [Concomitant]
     Active Substance: ALBUMIN HUMAN
  18. ROCEPHIN [Concomitant]
     Active Substance: CEFTRIAXONE SODIUM
  19. ALBUTEROL. [Concomitant]
     Active Substance: ALBUTEROL
  20. PROTONIX [Concomitant]
     Active Substance: PANTOPRAZOLE SODIUM
  21. CIPRO [Concomitant]
     Active Substance: CIPROFLOXACIN HYDROCHLORIDE

REACTIONS (5)
  - Acute respiratory failure [None]
  - Renal impairment [None]
  - Pulmonary oedema [None]
  - Metabolic acidosis [None]
  - Acute respiratory distress syndrome [None]

NARRATIVE: CASE EVENT DATE: 20161216
